FAERS Safety Report 12894958 (Version 7)
Quarter: 2018Q2

REPORT INFORMATION
  Report Type: Report from Study
  Country: JP (occurrence: JP)
  Receive Date: 20161028
  Receipt Date: 20180531
  Transmission Date: 20180711
  Serious: Yes (Death, Life-Threatening, Hospitalization, Other)
  Sender: FDA-Public Use
  Company Number: JP-AMGEN-JPNCT2016151236

PATIENT
  Age: 79 Year
  Sex: Female
  Weight: 47.6 kg

DRUGS (33)
  1. PANITUMUMAB [Suspect]
     Active Substance: PANITUMUMAB
     Dosage: 280 MG, Q2WK
     Route: 041
     Dates: start: 20160622, end: 20160907
  2. FLUOROURACIL. [Suspect]
     Active Substance: FLUOROURACIL
     Dosage: 200 MG/M2, Q2WK
     Route: 040
     Dates: start: 20160622, end: 20160907
  3. PANITUMUMAB [Suspect]
     Active Substance: PANITUMUMAB
     Dosage: 280 MG, Q2WK
     Route: 041
     Dates: start: 20160426, end: 20160525
  4. OXALIPLATIN. [Suspect]
     Active Substance: OXALIPLATIN
     Indication: COLON CANCER
     Dosage: 120 MG, Q2WEEKS
     Route: 041
     Dates: start: 20160330, end: 20160330
  5. OXALIPLATIN. [Suspect]
     Active Substance: OXALIPLATIN
     Dosage: 65 MG/M2, Q2WEEKS
     Route: 041
     Dates: start: 20161005, end: 20161005
  6. CALCIUM LEVOFOLINATE [Concomitant]
     Active Substance: LEVOLEUCOVORIN CALCIUM
     Dosage: UNK UNK, Q2WEEKS
     Route: 041
     Dates: start: 20160426, end: 20160525
  7. ZINC OXIDE. [Concomitant]
     Active Substance: ZINC OXIDE
     Indication: DERMATITIS
     Dosage: UNK
     Route: 062
     Dates: start: 20160907, end: 20161020
  8. HEPARINOID [Concomitant]
     Active Substance: CHONDROITIN SULFATE (BOVINE)
     Indication: DERMATITIS
     Dosage: UNK
     Route: 062
     Dates: start: 20160920, end: 20161020
  9. PANITUMUMAB [Suspect]
     Active Substance: PANITUMUMAB
     Dosage: 280 MG, Q2WK
     Route: 041
     Dates: start: 20161005, end: 20161005
  10. OXALIPLATIN. [Suspect]
     Active Substance: OXALIPLATIN
     Dosage: 65 MG/M2, Q2WEEKS
     Route: 041
     Dates: start: 20160426, end: 20160525
  11. FLUOROURACIL. [Suspect]
     Active Substance: FLUOROURACIL
     Dosage: 1821 MG/M2, Q2WEEKS
     Route: 041
     Dates: start: 20160426, end: 20160525
  12. FLUOROURACIL. [Suspect]
     Active Substance: FLUOROURACIL
     Dosage: 1821 MG/M2, Q2WEEKS
     Route: 041
     Dates: start: 20161005, end: 20161005
  13. FLUOROURACIL. [Suspect]
     Active Substance: FLUOROURACIL
     Indication: COLON CANCER
     Dosage: 600 MG, Q2WK
     Route: 040
     Dates: start: 20160330, end: 20160330
  14. CALCIUM LEVOFOLINATE [Concomitant]
     Active Substance: LEVOLEUCOVORIN CALCIUM
     Dosage: UNK UNK, Q2WEEKS
     Route: 041
     Dates: start: 20160622, end: 20160907
  15. PREDNISOLONE VALEROACETATE [Concomitant]
     Indication: DERMATITIS
     Dosage: UNK
     Route: 062
     Dates: start: 20160802, end: 20161020
  16. TRIAMCINOLONE ACETONIDE. [Concomitant]
     Active Substance: TRIAMCINOLONE ACETONIDE
     Indication: STOMATITIS
     Dosage: UNK
     Route: 050
     Dates: start: 20160420, end: 20161020
  17. FLUOROURACIL. [Suspect]
     Active Substance: FLUOROURACIL
     Dosage: 200 MG/M2, Q2WK
     Route: 040
     Dates: start: 20161005, end: 20161005
  18. CALCIUM LEVOFOLINATE [Concomitant]
     Active Substance: LEVOLEUCOVORIN CALCIUM
     Indication: COLON CANCER
     Dosage: 300 MG, Q2WEEKS
     Route: 041
     Dates: start: 20160330, end: 20160330
  19. FERROUS SULFATE. [Concomitant]
     Active Substance: FERROUS SULFATE
     Indication: ANAEMIA
     Dosage: 105 MG, QD
     Route: 048
     Dates: start: 20160223, end: 20161020
  20. LANSOPRAZOLE. [Concomitant]
     Active Substance: LANSOPRAZOLE
     Indication: GASTRITIS
     Dosage: 30 MG, QD
     Route: 048
     Dates: start: 20160223, end: 20161020
  21. PANITUMUMAB [Suspect]
     Active Substance: PANITUMUMAB
     Indication: COLON CANCER
     Dosage: 280 MG, Q2WK
     Route: 041
     Dates: start: 20160330, end: 20160330
  22. OXALIPLATIN. [Suspect]
     Active Substance: OXALIPLATIN
     Dosage: 65 MG/M2, Q2WEEKS
     Route: 041
     Dates: start: 20160622, end: 20160907
  23. FLUOROURACIL. [Suspect]
     Active Substance: FLUOROURACIL
     Dosage: 3600 MG, Q2WK
     Route: 041
     Dates: start: 20160330, end: 20160330
  24. MOSAPRIDE CITRATE [Concomitant]
     Active Substance: MOSAPRIDE CITRATE
     Indication: DECREASED APPETITE
     Dosage: 5 MG, TID
     Route: 048
     Dates: start: 20160316, end: 20161020
  25. HOCHUEKKITO [Concomitant]
     Active Substance: HERBALS
     Indication: DECREASED APPETITE
     Dosage: 1 DF, TID
     Route: 048
     Dates: start: 20160316
  26. FLUOROURACIL. [Suspect]
     Active Substance: FLUOROURACIL
     Dosage: 200 MG/M2, Q2WK
     Route: 040
     Dates: start: 20160426, end: 20160525
  27. FLUOROURACIL. [Suspect]
     Active Substance: FLUOROURACIL
     Dosage: 1821 MG/M2, Q2WEEKS
     Route: 041
     Dates: start: 20160622, end: 20160907
  28. CLOSTRIDIUM BUTYRICUM [Concomitant]
     Active Substance: CLOSTRIDIUM BUTYRICUM SPORES STRAIN M-55
     Indication: ENTEROCOLITIS
     Dosage: 40 MG, TID
     Route: 048
     Dates: start: 20160510, end: 20161020
  29. FLUDROXYCORTIDE [Concomitant]
     Indication: DERMATITIS
     Dosage: UNK
     Route: 062
     Dates: start: 20160524, end: 20161026
  30. CALCIUM LEVOFOLINATE [Concomitant]
     Active Substance: LEVOLEUCOVORIN CALCIUM
     Dosage: UNK UNK, Q2WEEKS
     Route: 041
     Dates: start: 20161005, end: 20161005
  31. BROTIZOLAM [Concomitant]
     Active Substance: BROTIZOLAM
     Indication: INSOMNIA
     Dosage: 0.25 MG, QD
     Route: 048
     Dates: start: 20160326, end: 20161020
  32. DOMPERIDONE [Concomitant]
     Active Substance: DOMPERIDONE
     Indication: NAUSEA
     Dosage: 10 MG, UNK
     Route: 048
     Dates: start: 20161005, end: 20161020
  33. TIOTROPIUM BROMIDE [Concomitant]
     Active Substance: TIOTROPIUM BROMIDE
     Indication: OBSTRUCTIVE AIRWAYS DISORDER
     Dosage: 2 DF, QD
     Route: 050
     Dates: start: 20160227, end: 20161020

REACTIONS (5)
  - Pulmonary embolism [Recovered/Resolved]
  - Deep vein thrombosis [Recovered/Resolved]
  - Pancytopenia [Fatal]
  - Pancytopenia [Recovered/Resolved]
  - Pneumonia [Fatal]

NARRATIVE: CASE EVENT DATE: 20160412
